FAERS Safety Report 17798947 (Version 2)
Quarter: 2021Q1

REPORT INFORMATION
  Report Type: Spontaneous
  Country: US (occurrence: US)
  Receive Date: 20200518
  Receipt Date: 20210122
  Transmission Date: 20210419
  Serious: Yes (Other)
  Sender: FDA-Public Use
  Company Number: US-PFIZER INC-2020192310

PATIENT
  Age: 26 Year
  Sex: Female
  Weight: 90.7 kg

DRUGS (2)
  1. DAPTOMYCIN. [Suspect]
     Active Substance: DAPTOMYCIN
     Indication: STAPHYLOCOCCAL INFECTION
  2. DAPTOMYCIN. [Suspect]
     Active Substance: DAPTOMYCIN
     Indication: OSTEOMYELITIS
     Dosage: UNK
     Dates: start: 201810, end: 201811

REACTIONS (7)
  - Ocular hypertension [Recovering/Resolving]
  - Osteomyelitis [Unknown]
  - Staphylococcal infection [Unknown]
  - Optic neuritis [Recovering/Resolving]
  - Vision blurred [Recovering/Resolving]
  - Drug ineffective [Unknown]
  - Papilloedema [Recovering/Resolving]
